FAERS Safety Report 15918240 (Version 1)
Quarter: 2019Q1

REPORT INFORMATION
  Report Type: Spontaneous
  Country: FR (occurrence: FR)
  Receive Date: 20190205
  Receipt Date: 20190205
  Transmission Date: 20190417
  Serious: Yes (Hospitalization, Disabling)
  Sender: FDA-Public Use
  Company Number: FR-TEVA-2019-FR-1007877

PATIENT
  Age: 46 Year
  Sex: Female

DRUGS (2)
  1. ANDROCUR (ACETATE DE CYPROTERONE; CYPROTERONE (ACETATE DE)) [Suspect]
     Active Substance: CYPROTERONE ACETATE
     Indication: ENDOMETRIOSIS
     Dosage: 50 MILLIGRAM DAILY;
     Route: 048
     Dates: start: 2006, end: 20151006
  2. ESTRADIOL. [Suspect]
     Active Substance: ESTRADIOL
     Indication: ENDOMETRIOSIS
     Dosage: 1 DOSAGE FORMS DAILY;
     Route: 003
     Dates: start: 2006, end: 20151006

REACTIONS (5)
  - Vertigo [Recovered/Resolved]
  - Meningioma [Recovered/Resolved with Sequelae]
  - Vision blurred [Recovered/Resolved]
  - Intracranial pressure increased [Recovered/Resolved]
  - Headache [Recovered/Resolved]

NARRATIVE: CASE EVENT DATE: 201502
